FAERS Safety Report 4636124-3 (Version None)
Quarter: 2005Q2

REPORT INFORMATION
  Report Type: 
  Country: None (occurrence: None)
  Receive Date: 20050414
  Receipt Date: 20050414
  Transmission Date: 20051028
  Serious: Yes (Death)
  Sender: FDA-Public Use
  Company Number: None

PATIENT
  Age: 60 Year
  Sex: Male
  Weight: 49.8957 kg

DRUGS (12)
  1. GEMCITABIN 1000 MG/M2 DAY 1 AND DAY 8 [Suspect]
     Indication: NON-SMALL CELL LUNG CANCER
     Dosage: 1590 MG IV DAY 1 AND 8
     Route: 042
     Dates: start: 20050307
  2. GEMCITABIN 1000 MG/M2 DAY 1 AND DAY 8 [Suspect]
     Indication: NON-SMALL CELL LUNG CANCER
     Dosage: 1590 MG IV DAY 1 AND 8
     Route: 042
     Dates: start: 20050314
  3. CARBOPLATIN [Suspect]
     Indication: NON-SMALL CELL LUNG CANCER
     Dosage: 589.5 MG DAY 1
     Dates: start: 20050307
  4. ALBUTEROL [Concomitant]
  5. ACETOMENOPHEN [Concomitant]
  6. CYANOCOBALAMIN [Concomitant]
  7. FLINISOLIDE [Concomitant]
  8. IPRATROPIUM BROMIDE [Concomitant]
  9. MEGESTROL ACETATE [Concomitant]
  10. MORPHINE SULFATE [Concomitant]
  11. ONDANSETRON [Concomitant]
  12. POTASSIUM CHLORIDE [Concomitant]

REACTIONS (1)
  - DISEASE PROGRESSION [None]
